FAERS Safety Report 4830101-5 (Version None)
Quarter: 2005Q4

REPORT INFORMATION
  Report Type: 
  Country: None (occurrence: None)
  Receive Date: 20051117
  Receipt Date: 20051109
  Transmission Date: 20060501
  Serious: Yes (Other)
  Sender: FDA-Public Use
  Company Number: 2005AP05893

PATIENT
  Age: 73 Year
  Sex: Female
  Weight: 64 kg

DRUGS (4)
  1. DIPRIVAN [Suspect]
     Indication: INDUCTION OF ANAESTHESIA
     Route: 042
  2. FENTANYL [Concomitant]
     Indication: INDUCTION OF ANAESTHESIA
     Route: 042
  3. VECURONIUM [Concomitant]
     Indication: INDUCTION OF ANAESTHESIA
     Route: 042
  4. SEVOFLURANE [Concomitant]
     Indication: MAINTENANCE OF ANAESTHESIA
     Route: 055

REACTIONS (1)
  - PULMONARY EMBOLISM [None]
